FAERS Safety Report 5989659-5 (Version None)
Quarter: 2008Q4

REPORT INFORMATION
  Report Type: 
  Country: None (occurrence: None)
  Receive Date: 20081208
  Receipt Date: 20081127
  Transmission Date: 20090506
  Serious: No
  Sender: FDA-Public Use
  Company Number: 2008-187617-NL

PATIENT
  Sex: Female

DRUGS (1)
  1. ETONOGESTREL [Suspect]
     Indication: CONTRACEPTION
     Dosage: DF
     Route: 058
     Dates: end: 20081120

REACTIONS (4)
  - HYPERSENSITIVITY [None]
  - IMPLANT SITE PRURITUS [None]
  - URTICARIA [None]
  - VISUAL IMPAIRMENT [None]
